FAERS Safety Report 8671483 (Version 6)
Quarter: 2013Q2

REPORT INFORMATION
  Report Type: Spontaneous
  Country: US (occurrence: US)
  Receive Date: 20120718
  Receipt Date: 20130522
  Transmission Date: 20140414
  Serious: No
  Sender: FDA-Public Use
  Company Number: US-ASTRAZENECA-2011SE40586

PATIENT
  Age: 25744 Day
  Sex: Female

DRUGS (5)
  1. ZOMIG [Suspect]
     Indication: MIGRAINE
     Route: 048
  2. ZOMIG [Suspect]
     Indication: MIGRAINE
     Dosage: 2.5 MG, SOMETIMES TAKES TWO A DAY
     Route: 048
  3. ZOMIG [Suspect]
     Indication: MIGRAINE
     Route: 048
  4. AMOXICILLIN [Concomitant]
  5. ASPIRIN [Concomitant]

REACTIONS (13)
  - Malaise [Unknown]
  - Malaise [Unknown]
  - Pain [Unknown]
  - Stress [Unknown]
  - Bone disorder [Unknown]
  - Memory impairment [Unknown]
  - Bedridden [Unknown]
  - Intervertebral disc disorder [Unknown]
  - Headache [Unknown]
  - Oropharyngeal pain [Unknown]
  - Neck pain [Unknown]
  - Drug dose omission [Unknown]
  - Intentional drug misuse [Unknown]
